FAERS Safety Report 7624065-9 (Version None)
Quarter: 2011Q3

REPORT INFORMATION
  Report Type: 
  Country: None (occurrence: None)
  Receive Date: 20110720
  Receipt Date: 20110707
  Transmission Date: 20111222
  Serious: Yes (Other)
  Sender: FDA-Public Use
  Company Number: PHHY2011DE02874

PATIENT
  Sex: Male
  Weight: 120 kg

DRUGS (3)
  1. CLOZAPINE [Suspect]
     Dosage: 100 MG, QD
     Route: 048
     Dates: start: 19900101
  2. CLOZAPINE [Suspect]
     Dosage: UNK UKN, UNK
     Route: 048
  3. GABAPENTIN [Concomitant]
     Indication: POLYNEUROPATHY

REACTIONS (2)
  - POLYNEUROPATHY [None]
  - PARAESTHESIA [None]
